FAERS Safety Report 24859954 (Version 2)
Quarter: 2025Q4

REPORT INFORMATION
  Report Type: Report from Study
  Country: US (occurrence: US)
  Receive Date: 20250119
  Receipt Date: 20251008
  Transmission Date: 20260118
  Serious: Yes (Other)
  Sender: UCB
  Company Number: US-UCBSA-2024064689

PATIENT
  Age: 22 Year
  Sex: Male
  Weight: 52 kg

DRUGS (10)
  1. FINTEPLA [Suspect]
     Active Substance: FENFLURAMINE
     Indication: Lennox-Gastaut syndrome
     Dosage: 4 MILLILITER, 2X/DAY (BID)
     Route: 048
     Dates: start: 20230524
  2. FINTEPLA [Suspect]
     Active Substance: FENFLURAMINE
     Dosage: 17.6 MILLIGRAM, ONCE DAILY (QD)
  3. FINTEPLA [Suspect]
     Active Substance: FENFLURAMINE
     Dosage: 2.4 MILLILITER PER DAY
     Dates: start: 20231122
  4. FINTEPLA [Suspect]
     Active Substance: FENFLURAMINE
     Dosage: 26.4 MILLIGRAM PER DAY
  5. FINTEPLA [Suspect]
     Active Substance: FENFLURAMINE
     Dosage: 17.6 MILLIGRAM PER DAY
  6. BRIVIACT [Concomitant]
     Active Substance: BRIVARACETAM
     Indication: Product used for unknown indication
     Dosage: 150 MILLIGRAM, 2X/DAY (BID)
     Route: 048
  7. VALIUM [Concomitant]
     Active Substance: DIAZEPAM
     Indication: Anxiety
     Dosage: TAKE 5 MG BY MOUTH EVERY 6 (SIX) HOURS AS NEEDED
     Route: 048
  8. PROZAC [Concomitant]
     Active Substance: FLUOXETINE HYDROCHLORIDE
     Indication: Product used for unknown indication
     Dosage: TAKE 1 CAPSULE BY MOUTH ONCE DAILY
     Route: 048
  9. RISPERDAL [Concomitant]
     Active Substance: RISPERIDONE
     Indication: Product used for unknown indication
     Dosage: TAKE 0.25 MG BY MOUTH DAILY.
     Route: 048
  10. XCOPRI [Concomitant]
     Active Substance: CENOBAMATE
     Indication: Product used for unknown indication
     Dosage: TAKE TWO TABLETS BY MOUTH DAILY AT BEDTIME
     Route: 048

REACTIONS (5)
  - Aortic valve incompetence [Unknown]
  - Aortic dilatation [Unknown]
  - Mitral valve incompetence [Unknown]
  - Tricuspid valve incompetence [Unknown]
  - Illness [Not Recovered/Not Resolved]

NARRATIVE: CASE EVENT DATE: 20230613
